FAERS Safety Report 9056479 (Version 2)
Quarter: 2013Q2

REPORT INFORMATION
  Report Type: Spontaneous
  Country: US (occurrence: US)
  Receive Date: 20130204
  Receipt Date: 20130513
  Transmission Date: 20140414
  Serious: Yes (Hospitalization, Disabling, Other)
  Sender: FDA-Public Use
  Company Number: US-PFIZER INC-2013041941

PATIENT
  Age: 40 Year
  Sex: Male
  Weight: 92 kg

DRUGS (1)
  1. CHANTIX [Suspect]
     Indication: SMOKING CESSATION THERAPY
     Dosage: UNK
     Dates: start: 2010

REACTIONS (4)
  - Suicide attempt [Unknown]
  - Physical disability [Not Recovered/Not Resolved]
  - Brain injury [Unknown]
  - Cognitive disorder [Unknown]
